FAERS Safety Report 7230260-3 (Version None)
Quarter: 2011Q1

REPORT INFORMATION
  Report Type: 
  Country: None (occurrence: None)
  Receive Date: 20110118
  Receipt Date: 20110106
  Transmission Date: 20110831
  Serious: Yes (Other)
  Sender: FDA-Public Use
  Company Number: US-PFIZER INC-2010133804

PATIENT
  Sex: Female

DRUGS (4)
  1. CHANTIX [Suspect]
     Indication: SMOKING CESSATION THERAPY
     Dosage: 0.5MG, 1MG
     Dates: start: 20071107, end: 20080111
  2. MONTELUKAST SODIUM [Concomitant]
     Indication: HYPERSENSITIVITY
     Dosage: UNK
     Dates: start: 20020101
  3. LISINOPRIL AND HYDROCHLOROTHIAZIDE [Concomitant]
     Indication: HYPERTENSION
     Dosage: UNK
     Dates: start: 19980101
  4. NASONEX [Concomitant]
     Indication: NASAL DISORDER
     Dosage: UNK
     Dates: start: 20020101

REACTIONS (9)
  - DEPRESSION [None]
  - AGGRESSION [None]
  - SUICIDAL IDEATION [None]
  - ANXIETY [None]
  - HOSTILITY [None]
  - NIGHTMARE [None]
  - MENTAL DISORDER [None]
  - INSOMNIA [None]
  - ANGER [None]
